FAERS Safety Report 15749857 (Version 1)
Quarter: 2018Q4

REPORT INFORMATION
  Report Type: Spontaneous
  Country: US (occurrence: US)
  Receive Date: 20181205
  Receipt Date: 20181205
  Transmission Date: 20190205
  Serious: Yes (Hospitalization)
  Sender: FDA-Public Use
  Company Number: None

PATIENT
  Age: 13 Year
  Sex: Male

DRUGS (6)
  1. TOBRAMYCIN 300MG/5ML SOLN [Suspect]
     Active Substance: TOBRAMYCIN
     Indication: VIRAL INFECTION
     Dosage: ?          OTHER ROUTE:INHALED?
     Dates: start: 20160329
  2. TOBRAMYCIN 300MG/5ML SOLN [Suspect]
     Active Substance: TOBRAMYCIN
     Indication: ASTHMA
     Dosage: ?          OTHER ROUTE:INHALED?
     Dates: start: 20160329
  3. SINGULAIR [Concomitant]
     Active Substance: MONTELUKAST SODIUM
  4. PULMOZYME [Concomitant]
     Active Substance: DORNASE ALFA
  5. TOBRAMYCIN 300MG/5ML SOLN [Suspect]
     Active Substance: TOBRAMYCIN
     Indication: BRONCHITIS
     Dosage: ?          OTHER ROUTE:INHALED?
     Dates: start: 20160329
  6. CETIRIZINE [Concomitant]
     Active Substance: CETIRIZINE HYDROCHLORIDE

REACTIONS (1)
  - Rhinovirus infection [None]

NARRATIVE: CASE EVENT DATE: 20181001
